FAERS Safety Report 25251155 (Version 1)
Quarter: 2025Q2

REPORT INFORMATION
  Report Type: Spontaneous
  Country: US (occurrence: US)
  Receive Date: 20250429
  Receipt Date: 20250429
  Transmission Date: 20250717
  Serious: Yes (Hospitalization, Other)
  Sender: RECKITT BENCKISER
  Company Number: US-INDIVIOR US-INDV-160816-2025

PATIENT
  Age: 51 Year
  Sex: Male

DRUGS (6)
  1. BUPRENORPHINE [Suspect]
     Active Substance: BUPRENORPHINE
     Indication: Substance use disorder
     Dosage: UNK, QMO
     Route: 065
  2. BUPRENORPHINE [Suspect]
     Active Substance: BUPRENORPHINE
  3. NICOTINE TRANSDERMAL SYSTEM [Concomitant]
     Active Substance: NICOTINE
     Indication: Tobacco use disorder
     Route: 062
  4. SODIUM ZIRCONIUM CYCLOSILICATE [Concomitant]
     Active Substance: SODIUM ZIRCONIUM CYCLOSILICATE
     Indication: Product used for unknown indication
     Route: 065
  5. LOKELMA [Concomitant]
     Active Substance: SODIUM ZIRCONIUM CYCLOSILICATE
     Indication: Product used for unknown indication
     Route: 065
  6. CALCIUM CARBONATE\VITAMIN D [Concomitant]
     Active Substance: CALCIUM CARBONATE\VITAMIN D
     Indication: Product used for unknown indication
     Route: 065

REACTIONS (10)
  - End stage renal disease [Unknown]
  - Loss of consciousness [Recovered/Resolved]
  - Vitamin C deficiency [Recovering/Resolving]
  - Catheter site haemorrhage [Recovered/Resolved]
  - Malnutrition [Recovering/Resolving]
  - Abnormal loss of weight [Unknown]
  - Toxic encephalopathy [Unknown]
  - Mental status changes [Unknown]
  - Head injury [Recovered/Resolved]
  - Hepatitis C [Not Recovered/Not Resolved]

NARRATIVE: CASE EVENT DATE: 20230101
